FAERS Safety Report 20675177 (Version 2)
Quarter: 2022Q2

REPORT INFORMATION
  Report Type: Report from Study
  Country: US (occurrence: US)
  Receive Date: 20220405
  Receipt Date: 20220505
  Transmission Date: 20220721
  Serious: Yes (Hospitalization)
  Sender: FDA-Public Use
  Company Number: US-TAKEDA-2022TUS000950

PATIENT
  Age: 71 Year
  Sex: Female
  Weight: 77 kg

DRUGS (6)
  1. MARIBAVIR [Suspect]
     Active Substance: MARIBAVIR
     Indication: Cytomegalovirus infection
     Dosage: 400 MILLIGRAM, BID
     Route: 048
     Dates: start: 20211229
  2. MARIBAVIR [Suspect]
     Active Substance: MARIBAVIR
     Dosage: 400 MILLIGRAM, BID
     Route: 048
     Dates: start: 20211229, end: 20220314
  3. MARIBAVIR [Suspect]
     Active Substance: MARIBAVIR
     Dosage: UNK, BID
     Route: 048
     Dates: end: 20220316
  4. FOSCARNET [Concomitant]
     Active Substance: FOSCARNET
     Indication: Renal failure
     Dosage: UNK
     Route: 065
  5. GANCICLOVIR [Concomitant]
     Active Substance: GANCICLOVIR
     Indication: Renal failure
     Dosage: UNK
     Route: 042
  6. VALCYTE [Concomitant]
     Active Substance: VALGANCICLOVIR HYDROCHLORIDE
     Indication: Renal failure
     Dosage: UNK

REACTIONS (9)
  - Hospitalisation [Unknown]
  - Epstein-Barr virus infection [Unknown]
  - Fall [Unknown]
  - Joint injury [Unknown]
  - Laboratory test abnormal [Unknown]
  - Impaired healing [Unknown]
  - Treatment failure [Unknown]
  - Drug resistance [Unknown]
  - Drug ineffective [Unknown]

NARRATIVE: CASE EVENT DATE: 20220316
